FAERS Safety Report 5063451-0 (Version None)
Quarter: 2006Q3

REPORT INFORMATION
  Report Type: 
  Country: None (occurrence: None)
  Receive Date: 20060724
  Receipt Date: 20060712
  Transmission Date: 20061208
  Serious: Yes (Death, Other)
  Sender: FDA-Public Use
  Company Number: GXKR2006JP04054

PATIENT
  Age: 87 Year
  Sex: Male

DRUGS (2)
  1. METHYLPREDNISOLONE [Suspect]
     Indication: POLYMYOSITIS
     Dosage: 500 MG, QD, INTRAVENOUS
     Route: 042
  2. PREDNISOLONE [Suspect]
     Indication: POLYMYOSITIS
     Dosage: 60 MG, QD, ORAL
     Route: 048

REACTIONS (2)
  - CYTOMEGALOVIRUS ANTIGEN POSITIVE [None]
  - PNEUMOCYSTIS JIROVECI PNEUMONIA [None]
